FAERS Safety Report 9935004 (Version 3)
Quarter: 2014Q2

REPORT INFORMATION
  Report Type: Report from Study
  Country: JP (occurrence: JP)
  Receive Date: 20140228
  Receipt Date: 20140408
  Transmission Date: 20141212
  Serious: Yes (Hospitalization, Other)
  Sender: FDA-Public Use
  Company Number: JP-JNJFOC-20140214243

PATIENT
  Age: 69 Year
  Sex: Male

DRUGS (13)
  1. CANAGLIFLOZIN [Suspect]
     Route: 048
  2. CANAGLIFLOZIN [Suspect]
     Indication: TYPE 2 DIABETES MELLITUS
     Route: 048
     Dates: start: 20110823, end: 20120821
  3. XYZAL [Concomitant]
     Route: 048
     Dates: start: 20111112
  4. SELTOUCH [Concomitant]
     Route: 061
     Dates: start: 20111210, end: 20120302
  5. CELECOX [Concomitant]
     Route: 048
     Dates: start: 20120303
  6. OPALMON [Concomitant]
     Route: 048
     Dates: start: 20120303
  7. MOHRUS TAPE [Concomitant]
     Route: 061
     Dates: start: 20120303
  8. WARFARIN [Concomitant]
     Route: 048
  9. NU-LOTAN [Concomitant]
     Route: 048
  10. ALLELOCK [Concomitant]
     Route: 048
     Dates: end: 20111111
  11. MUCOSTA [Concomitant]
     Route: 048
  12. VASOLAN [Concomitant]
     Route: 048
  13. ZEPELIN [Concomitant]
     Route: 031
     Dates: start: 20120331

REACTIONS (1)
  - Renal neoplasm [Recovering/Resolving]
